FAERS Safety Report 21607324 (Version 3)
Quarter: 2022Q4

REPORT INFORMATION
  Report Type: Spontaneous
  Country: IT (occurrence: IT)
  Receive Date: 20221117
  Receipt Date: 20221209
  Transmission Date: 20230112
  Serious: No
  Sender: FDA-Public Use
  Company Number: IT-002147023-NVSC2022IT256516

PATIENT
  Age: 72 Year

DRUGS (3)
  1. PAZOPANIB [Suspect]
     Active Substance: PAZOPANIB
     Indication: Product used for unknown indication
     Dosage: 800 MG, QD
     Route: 065
     Dates: start: 20150616
  2. PAZOPANIB [Suspect]
     Active Substance: PAZOPANIB
     Dosage: 400 MG, QD
     Route: 065
  3. PAZOPANIB [Suspect]
     Active Substance: PAZOPANIB
     Dosage: 200 MG, QD
     Route: 065

REACTIONS (3)
  - Osteolysis [Unknown]
  - Pain in extremity [Unknown]
  - Diarrhoea [Unknown]

NARRATIVE: CASE EVENT DATE: 20181201
